FAERS Safety Report 11787511 (Version 1)
Quarter: 2015Q4

REPORT INFORMATION
  Report Type: Spontaneous
  Country: US (occurrence: US)
  Receive Date: 20151130
  Receipt Date: 20151130
  Transmission Date: 20160305
  Serious: Yes (Other)
  Sender: FDA-Public Use
  Company Number: US-TEVA-612950USA

PATIENT
  Age: 51 Year

DRUGS (1)
  1. COPAXONE [Suspect]
     Active Substance: GLATIRAMER ACETATE
     Indication: MULTIPLE SCLEROSIS
     Dosage: UNKNOWN FORM STRENGTH

REACTIONS (5)
  - Bladder disorder [Unknown]
  - Secondary progressive multiple sclerosis [Unknown]
  - Functional gastrointestinal disorder [Unknown]
  - Product use issue [Unknown]
  - Gait disturbance [Unknown]
